FAERS Safety Report 25044581 (Version 2)
Quarter: 2025Q3

REPORT INFORMATION
  Report Type: Spontaneous
  Country: US (occurrence: US)
  Receive Date: 20250306
  Receipt Date: 20250724
  Transmission Date: 20251021
  Serious: No
  Sender: DIFGEN PHARMACEUTICALS LLC
  Company Number: US-Difgen-011954

PATIENT
  Sex: Female

DRUGS (1)
  1. FENTANYL [Suspect]
     Active Substance: FENTANYL
     Indication: Pain
     Route: 062

REACTIONS (3)
  - Inadequate analgesia [Unknown]
  - Product adhesion issue [Unknown]
  - Product substitution issue [Unknown]
